FAERS Safety Report 6463287-X (Version None)
Quarter: 2009Q4

REPORT INFORMATION
  Report Type: 
  Country: None (occurrence: None)
  Receive Date: 20091130
  Receipt Date: 20090611
  Transmission Date: 20100525
  Serious: Yes (Other)
  Sender: FDA-Public Use
  Company Number: US-AMGEN-QUU351175

PATIENT
  Sex: Male
  Weight: 89 kg

DRUGS (2)
  1. ENBREL [Suspect]
     Indication: PSORIASIS
     Route: 058
     Dates: start: 20080701, end: 20081101
  2. AMBIEN [Concomitant]

REACTIONS (3)
  - DEPRESSION [None]
  - HERPES ZOSTER [None]
  - POST HERPETIC NEURALGIA [None]
